FAERS Safety Report 6100085-0 (Version None)
Quarter: 2009Q1

REPORT INFORMATION
  Report Type: 
  Country: None (occurrence: None)
  Receive Date: 20090303
  Receipt Date: 20090225
  Transmission Date: 20090719
  Serious: Yes (Other)
  Sender: FDA-Public Use
  Company Number: B0562248A

PATIENT
  Age: 13 Year
  Sex: Female

DRUGS (2)
  1. SEREUPIN [Suspect]
     Indication: DRUG USE FOR UNKNOWN INDICATION
     Dosage: 2TAB PER DAY
     Route: 065
     Dates: start: 20090211, end: 20090211
  2. KLACID [Concomitant]
     Dosage: 3TAB PER DAY
     Route: 065
     Dates: start: 20090211, end: 20090211

REACTIONS (4)
  - ELECTROCARDIOGRAM QT PROLONGED [None]
  - OVERDOSE [None]
  - SOPOR [None]
  - VOMITING [None]
